FAERS Safety Report 6562208-9 (Version None)
Quarter: 2010Q1

REPORT INFORMATION
  Report Type: 
  Country: None (occurrence: None)
  Receive Date: 20100130
  Receipt Date: 20091103
  Transmission Date: 20100710
  Serious: No
  Sender: FDA-Public Use
  Company Number: US-ABBOTT-09P-163-0607119-00

PATIENT
  Sex: Female
  Weight: 63.106 kg

DRUGS (6)
  1. HUMIRA [Suspect]
     Indication: PSORIASIS
     Route: 058
     Dates: start: 20091001
  2. HUMIRA [Suspect]
     Indication: PSORIATIC ARTHROPATHY
  3. EFFEXOR [Concomitant]
     Indication: DRUG USE FOR UNKNOWN INDICATION
  4. NEURONTIN [Concomitant]
     Indication: DRUG USE FOR UNKNOWN INDICATION
  5. METFORMAIN [Concomitant]
     Indication: DIABETES MELLITUS
  6. LOVASTATIN [Concomitant]
     Indication: BLOOD CHOLESTEROL INCREASED

REACTIONS (2)
  - PRURITUS [None]
  - RASH MACULAR [None]
